FAERS Safety Report 4977699-4 (Version None)
Quarter: 2006Q2

REPORT INFORMATION
  Report Type: 
  Country: None (occurrence: None)
  Receive Date: 20060420
  Receipt Date: 20060103
  Transmission Date: 20061013
  Serious: Yes (Hospitalization)
  Sender: FDA-Public Use
  Company Number: US-GLAXOSMITHKLINE-A0587516A

PATIENT
  Age: 63 Year
  Sex: Female

DRUGS (2)
  1. ESKALITH [Suspect]
     Dosage: 450MG TWICE PER DAY
     Route: 048
  2. NEXIUM [Concomitant]

REACTIONS (4)
  - ABDOMINAL PAIN UPPER [None]
  - AGEUSIA [None]
  - DIARRHOEA [None]
  - TREMOR [None]
